FAERS Safety Report 7681434 (Version 2)
Quarter: 2012Q4

REPORT INFORMATION
  Report Type: 
  Country: US (occurrence: IT)
  Receive Date: 20101124
  Receipt Date: 20121116
  Transmission Date: 20130627
  Serious: Yes (Life-Threatening)
  Sender: FDA-Public Use
  Company Number: US-RANBAXY-2010US-39466

PATIENT
  Age: 61 Year
  Sex: Female

DRUGS (2)
  1. ISOPTIN SR [Suspect]
     Indication: HYPERTENSION
     Dosage: 180 mg, qd
     Route: 048
     Dates: start: 20091025, end: 20091109
  2. ATENOLOL [Concomitant]
     Indication: PRODUCT USED FOR UNKNOWN INDICATION
     Dosage: 100 (1/2 tablet)
     Route: 065

REACTIONS (3)
  - Abdominal pain upper [Unknown]
  - Palpitations [Unknown]
  - Syncope [Unknown]
